FAERS Safety Report 4579887-8 (Version None)
Quarter: 2005Q1

REPORT INFORMATION
  Report Type: 
  Country: None (occurrence: None)
  Receive Date: 20050203
  Receipt Date: 20050119
  Transmission Date: 20050727
  Serious: Yes (Other)
  Sender: FDA-Public Use
  Company Number: WAES 0501USA03349

PATIENT
  Sex: 0

DRUGS (1)
  1. ELSPAR [Suspect]
     Indication: ACUTE LYMPHOCYTIC LEUKAEMIA

REACTIONS (4)
  - BLOOD FIBRINOGEN DECREASED [None]
  - DEEP VEIN THROMBOSIS [None]
  - LIVER DISORDER [None]
  - PULMONARY EMBOLISM [None]
